FAERS Safety Report 4732164-4 (Version None)
Quarter: 2005Q3

REPORT INFORMATION
  Report Type: 
  Country: None (occurrence: None)
  Receive Date: 20050725
  Receipt Date: 20030618
  Transmission Date: 20060218
  Serious: Yes (Death)
  Sender: FDA-Public Use
  Company Number: USA-2003-0008053

PATIENT
  Age: 47 Year
  Sex: Female
  Weight: 86.6 kg

DRUGS (7)
  1. MORPHINE SULFATE [Suspect]
     Route: 065
  2. HYDROCODONE BITARTRATE [Suspect]
     Dosage: UNK KG, UNK, UNKNOWN
     Route: 065
  3. ALPRAZOLAM [Suspect]
     Route: 065
  4. CITALOPRAM (CITALOPRAM) [Suspect]
     Route: 065
  5. ERYTHROMYCIN [Suspect]
     Route: 065
  6. CODEINE SUL TAB [Suspect]
     Route: 065
  7. DIHYDROCODEINE/CAFFEINE/ACETAMINOPHEN (SIMILAR TO ANDA 88-584) (DIHYDR [Suspect]
     Route: 065

REACTIONS (2)
  - ACCIDENTAL OVERDOSE [None]
  - MULTIPLE DRUG OVERDOSE [None]
